FAERS Safety Report 6999927-6 (Version None)
Quarter: 2010Q3

REPORT INFORMATION
  Report Type: 
  Country: None (occurrence: None)
  Receive Date: 20100920
  Receipt Date: 20091210
  Transmission Date: 20110219
  Serious: No
  Sender: FDA-Public Use
  Company Number: US-ASTRAZENECA-2009SE31468

PATIENT
  Age: 70 Year
  Sex: Female

DRUGS (3)
  1. SEROQUEL XR [Suspect]
     Route: 048
  2. CYMBALTA [Suspect]
  3. NEURONTIN [Suspect]

REACTIONS (1)
  - PAIN [None]
